FAERS Safety Report 7194445-7 (Version None)
Quarter: 2010Q4

REPORT INFORMATION
  Report Type: 
  Country: None (occurrence: None)
  Receive Date: 20101223
  Receipt Date: 20101221
  Transmission Date: 20110411
  Serious: Yes (Death, Other)
  Sender: FDA-Public Use
  Company Number: US-AMGEN-USASP2010009257

PATIENT

DRUGS (3)
  1. NPLATE [Suspect]
     Indication: IDIOPATHIC THROMBOCYTOPENIC PURPURA
     Dosage: 10 A?G/KG, UNK
     Dates: start: 20091110, end: 20091224
  2. RITUXIMAB [Concomitant]
     Dosage: UNK
     Dates: start: 20091105
  3. WINRHO [Concomitant]

REACTIONS (2)
  - DEATH [None]
  - HAEMATOCHEZIA [None]
